FAERS Safety Report 4635606-8 (Version None)
Quarter: 2005Q2

REPORT INFORMATION
  Report Type: 
  Country: None (occurrence: None)
  Receive Date: 20050413
  Receipt Date: 20050411
  Transmission Date: 20051028
  Serious: Yes (Hospitalization, Other)
  Sender: FDA-Public Use
  Company Number: KII-2003-0003990

PATIENT
  Age: 41 Year
  Sex: Male

DRUGS (7)
  1. OXYCONTIN [Suspect]
  2. DARVON [Suspect]
  3. ATIVAN [Suspect]
  4. VALIUM [Suspect]
  5. PERCOCET [Suspect]
  6. METAMFETAMINE (METAMFETAMINE) [Suspect]
  7. CRACK(COCAINE) [Suspect]

REACTIONS (13)
  - BLOOD CREATINE PHOSPHOKINASE INCREASED [None]
  - BLOOD PRESSURE DECREASED [None]
  - BODY TEMPERATURE INCREASED [None]
  - COMA [None]
  - CYANOSIS [None]
  - ELECTROCARDIOGRAM QT PROLONGED [None]
  - HEART RATE DECREASED [None]
  - LETHARGY [None]
  - MIOSIS [None]
  - MULTIPLE DRUG OVERDOSE [None]
  - NERVOUS SYSTEM DISORDER [None]
  - OLIGURIA [None]
  - RESPIRATORY FAILURE [None]
